FAERS Safety Report 4784233-0 (Version None)
Quarter: 2005Q3

REPORT INFORMATION
  Report Type: 
  Country: None (occurrence: None)
  Receive Date: 20050928
  Receipt Date: 20050914
  Transmission Date: 20060218
  Serious: Yes (Hospitalization)
  Sender: FDA-Public Use
  Company Number: 193271

PATIENT
  Age: 56 Year
  Sex: Male

DRUGS (5)
  1. AVONEX [Suspect]
     Indication: MULTIPLE SCLEROSIS
     Dosage: 30 UG; QW; IM; 30 UG; QW; IM
     Route: 030
     Dates: start: 20030201, end: 20030801
  2. RYTHMOL [Concomitant]
  3. XANAX [Concomitant]
  4. LANOXIN [Concomitant]
  5. AVANDIA [Concomitant]

REACTIONS (3)
  - ARTERIAL OCCLUSIVE DISEASE [None]
  - ATHEROSCLEROSIS [None]
  - PERIPHERAL ISCHAEMIA [None]
